FAERS Safety Report 8849103 (Version 3)
Quarter: 2012Q4

REPORT INFORMATION
  Report Type: 
  Country: US (occurrence: US)
  Receive Date: 20121019
  Receipt Date: 20121217
  Transmission Date: 20130627
  Serious: No
  Sender: FDA-Public Use
  Company Number: US-BAYER-2012-108856

PATIENT
  Age: 46 Year
  Sex: Female
  Weight: 52.15 kg

DRUGS (2)
  1. BETASERON [Suspect]
     Indication: MS
     Dosage: 8 miu, QOD
     Route: 058
     Dates: start: 19931220
  2. BETASERON [Suspect]
     Indication: MS
     Dosage: 0.25 mg, QOD
     Route: 058
     Dates: start: 20020722

REACTIONS (9)
  - Injection site erythema [Recovering/Resolving]
  - Injection site dryness [Recovering/Resolving]
  - Injection site exfoliation [Recovering/Resolving]
  - Injection site pain [Recovering/Resolving]
  - Wrong technique in drug usage process [None]
  - Multiple use of single-use product [None]
  - Injection site scar [Not Recovered/Not Resolved]
  - Injection site erythema [Not Recovered/Not Resolved]
  - Injection site bruising [Not Recovered/Not Resolved]
